FAERS Safety Report 6493464-3 (Version None)
Quarter: 2009Q4

REPORT INFORMATION
  Report Type: 
  Country: None (occurrence: None)
  Receive Date: 20091214
  Receipt Date: 20091207
  Transmission Date: 20100525
  Serious: Yes (Life-Threatening, Hospitalization, Other)
  Sender: FDA-Public Use
  Company Number: TW-PFIZER INC-2009308174

PATIENT
  Age: 44 Year
  Sex: Male
  Weight: 63 kg

DRUGS (1)
  1. CELEBREX [Suspect]
     Indication: HEADACHE
     Dosage: UNK
     Dates: start: 20091101

REACTIONS (2)
  - ARTERIAL HAEMORRHAGE [None]
  - SYNCOPE [None]
